FAERS Safety Report 4345610-5 (Version None)
Quarter: 2004Q2

REPORT INFORMATION
  Report Type: 
  Country: None (occurrence: None)
  Receive Date: 20040421
  Receipt Date: 20040414
  Transmission Date: 20050107
  Serious: Yes (Death)
  Sender: FDA-Public Use
  Company Number: 200403619

PATIENT
  Sex: Female

DRUGS (1)
  1. TYLENOL [Suspect]

REACTIONS (2)
  - MICROLITHIASIS [None]
  - OVERDOSE [None]
